FAERS Safety Report 10101750 (Version 1)
Quarter: 2014Q2

REPORT INFORMATION
  Report Type: Spontaneous
  Country: US (occurrence: US)
  Receive Date: 20140424
  Receipt Date: 20140424
  Transmission Date: 20141212
  Serious: Yes (Other)
  Sender: FDA-Public Use
  Company Number: US-BAYER-2014-059420

PATIENT
  Age: 67 Year
  Sex: Male

DRUGS (2)
  1. XOFIGO [Suspect]
     Indication: PROSTATE CANCER METASTATIC
     Dosage: ONE DOSE
     Route: 042
     Dates: start: 2014
  2. XOFIGO [Suspect]
     Indication: METASTASES TO BONE

REACTIONS (1)
  - Prostatic specific antigen increased [Not Recovered/Not Resolved]
